FAERS Safety Report 13570431 (Version 4)
Quarter: 2017Q2

REPORT INFORMATION
  Report Type: Spontaneous
  Country: GB (occurrence: GB)
  Receive Date: 20170522
  Receipt Date: 20170619
  Transmission Date: 20170830
  Serious: Yes (Other)
  Sender: FDA-Public Use
  Company Number: PHFR2017GB003798

PATIENT
  Sex: Male

DRUGS (5)
  1. DICLOFENAC [Suspect]
     Active Substance: DICLOFENAC
     Indication: ARTHRITIS
     Route: 065
  2. VOLTAROL [Suspect]
     Active Substance: DICLOFENAC SODIUM
     Indication: ARTHRITIS
     Dosage: 1 DF, TID
     Route: 065
  3. VOLTAROL [Suspect]
     Active Substance: DICLOFENAC SODIUM
     Indication: ARTHRITIS
     Dosage: 1 DF, TID
     Route: 065
  4. VOLTAROL [Suspect]
     Active Substance: DICLOFENAC SODIUM
     Dosage: 2 DF, UNK
     Route: 065
  5. METFORMIN [Suspect]
     Active Substance: METFORMIN HYDROCHLORIDE
     Indication: DIABETES MELLITUS
     Route: 065

REACTIONS (5)
  - Pain [Unknown]
  - Drug use disorder [Unknown]
  - Movement disorder [Unknown]
  - Therapeutic response unexpected [Unknown]
  - Drug ineffective [Unknown]
